FAERS Safety Report 8460728 (Version 4)
Quarter: 2013Q1

REPORT INFORMATION
  Report Type: Spontaneous
  Country: JP (occurrence: JP)
  Receive Date: 20120315
  Receipt Date: 20130320
  Transmission Date: 20140127
  Serious: Yes (Hospitalization)
  Sender: FDA-Public Use
  Company Number: JP-PFIZER INC-2012061371

PATIENT
  Age: 37 Year
  Sex: Female
  Weight: 72 kg

DRUGS (1)
  1. MEDROXYPROGESTERONE [Suspect]
     Indication: ENDOMETRIAL HYPERPLASIA
     Dosage: 600 MG, DAILY
     Route: 048

REACTIONS (3)
  - Adenomyosis [Unknown]
  - Condition aggravated [Unknown]
  - Off label use [Unknown]
